FAERS Safety Report 17028038 (Version 1)
Quarter: 2019Q4

REPORT INFORMATION
  Report Type: Spontaneous
  Country: GB (occurrence: GB)
  Receive Date: 20191113
  Receipt Date: 20191113
  Transmission Date: 20200122
  Serious: Yes (Other)
  Sender: FDA-Public Use
  Company Number: GB-PFIZER INC-2019490760

PATIENT
  Age: 59 Year
  Sex: Female
  Weight: 70 kg

DRUGS (5)
  1. VITAMIN B [Concomitant]
     Active Substance: VITAMIN B
     Dosage: TAKE 1 OR 2 2 TIMES/DAY
     Dates: start: 20170619
  2. PREGABALIN. [Concomitant]
     Active Substance: PREGABALIN
     Dosage: 2 DF, 1X/DAY
     Dates: start: 20180724
  3. THIAMINE. [Concomitant]
     Active Substance: THIAMINE
     Dosage: 1 DF, 1X/DAY
     Dates: start: 20170619
  4. LOSARTAN. [Concomitant]
     Active Substance: LOSARTAN
     Dosage: 1 DF, 1X/DAY
     Dates: start: 20170619
  5. CHAMPIX [Suspect]
     Active Substance: VARENICLINE TARTRATE
     Indication: SMOKING CESSATION THERAPY
     Dosage: UNK
     Dates: start: 20180330

REACTIONS (3)
  - Facial nerve disorder [Recovering/Resolving]
  - Hypoaesthesia [Recovering/Resolving]
  - Nausea [Unknown]

NARRATIVE: CASE EVENT DATE: 20180330
